FAERS Safety Report 21788338 (Version 1)
Quarter: 2022Q4

REPORT INFORMATION
  Report Type: Spontaneous
  Country: AT (occurrence: AT)
  Receive Date: 20221228
  Receipt Date: 20221228
  Transmission Date: 20230113
  Serious: Yes (Other)
  Sender: FDA-Public Use
  Company Number: AT-MYLANLABS-2022M1145420

PATIENT
  Age: 56 Year
  Sex: Male

DRUGS (16)
  1. BORTEZOMIB [Suspect]
     Active Substance: BORTEZOMIB
     Indication: Plasma cell myeloma
     Dosage: UNK (FOUR CYCLES)
     Route: 065
     Dates: start: 201403
  2. BORTEZOMIB [Suspect]
     Active Substance: BORTEZOMIB
     Dosage: UNK (FOUR CYCLES OF BORTEZOMIB/BENDAMUSTIN/PREDNISOLON)
     Route: 065
     Dates: start: 201504, end: 201509
  3. BORTEZOMIB [Suspect]
     Active Substance: BORTEZOMIB
     Dosage: UNK (TWO CYCLES OF BORTEZOMIB/DEXAMETHASONE)
     Route: 065
     Dates: start: 201504, end: 201509
  4. DOXORUBICIN HYDROCHLORIDE [Concomitant]
     Active Substance: DOXORUBICIN HYDROCHLORIDE
     Dosage: UNK (FOUR CYCLES)
     Route: 065
     Dates: start: 201403
  5. DEXAMETHASONE [Concomitant]
     Active Substance: DEXAMETHASONE
     Indication: Plasma cell myeloma refractory
     Dosage: UNK (FOUR CYCLES)
     Route: 065
  6. DEXAMETHASONE [Concomitant]
     Active Substance: DEXAMETHASONE
     Dosage: UNK
     Route: 065
     Dates: start: 201408, end: 201501
  7. DEXAMETHASONE [Concomitant]
     Active Substance: DEXAMETHASONE
     Dosage: UNK (TWO CYCLES OF BORTEZOMIB/DEXAMETHASONE)
     Route: 065
     Dates: start: 201504, end: 201509
  8. LENALIDOMIDE [Concomitant]
     Active Substance: LENALIDOMIDE
     Indication: Plasma cell myeloma refractory
     Dosage: UNK
     Route: 065
     Dates: start: 201408, end: 201501
  9. LENALIDOMIDE [Concomitant]
     Active Substance: LENALIDOMIDE
     Dosage: UNK (TWO CYCLES )
     Route: 065
     Dates: start: 20151229
  10. BENDAMUSTINE [Concomitant]
     Active Substance: BENDAMUSTINE
     Dosage: UNK (FOUR CYCLES OF BORTEZOMIB/ BENDAMUSTINE/PREDNISOLON)
     Route: 065
     Dates: start: 201504, end: 201504
  11. PREDNISOLONE [Concomitant]
     Active Substance: PREDNISOLONE
     Dosage: UNK (FOUR CYCLES OF BORTEZOMIB/ BENDAMUSTINE/PREDNISOLON)
     Route: 065
  12. CYCLOPHOSPHAMIDE [Concomitant]
     Active Substance: CYCLOPHOSPHAMIDE
     Dosage: UNK
     Route: 065
     Dates: start: 201510
  13. PLERIXAFOR [Concomitant]
     Active Substance: PLERIXAFOR
     Dosage: UNK
     Route: 065
  14. CARFILZOMIB [Concomitant]
     Active Substance: CARFILZOMIB
     Indication: Plasma cell myeloma refractory
     Dosage: UNK (TWO CYCLES )
     Route: 065
     Dates: start: 20151229
  15. ZOLEDRONIC ACID [Concomitant]
     Active Substance: ZOLEDRONIC ACID
     Dosage: UNK
     Route: 065
  16. XGEVA [Concomitant]
     Active Substance: DENOSUMAB
     Dosage: UNK
     Route: 065
     Dates: start: 201808

REACTIONS (3)
  - Bone marrow infiltration [Unknown]
  - Stress [Unknown]
  - Drug ineffective [Unknown]

NARRATIVE: CASE EVENT DATE: 20140701
